FAERS Safety Report 4838954-1 (Version None)
Quarter: 2005Q4

REPORT INFORMATION
  Report Type: 
  Country: None (occurrence: None)
  Receive Date: 20051123
  Receipt Date: 20051123
  Transmission Date: 20060501
  Serious: Yes (Death)
  Sender: FDA-Public Use
  Company Number: None

PATIENT
  Age: 21 Year
  Sex: Male
  Weight: 105.2345 kg

DRUGS (2)
  1. WELLBUTRIN SR [Suspect]
     Indication: MAJOR DEPRESSION
     Dosage: 200 MG IN AM, 100 MG 4:00 PM   TWICE DAILY  PO
     Route: 048
     Dates: start: 20040901, end: 20040917
  2. ABILIFY [Suspect]
     Indication: AFFECTIVE DISORDER
     Dosage: 10 MG   ONCE DAILY   PO
     Route: 048
     Dates: start: 20040901, end: 20040917

REACTIONS (14)
  - CARDIO-RESPIRATORY ARREST [None]
  - DEPRESSION [None]
  - DRUG CLEARANCE DECREASED [None]
  - DRUG TOXICITY [None]
  - FALL [None]
  - GRAND MAL CONVULSION [None]
  - HALLUCINATION, VISUAL [None]
  - HEAD INJURY [None]
  - LIMB INJURY [None]
  - MOOD SWINGS [None]
  - OVERDOSE [None]
  - SKIN LACERATION [None]
  - SPEECH DISORDER [None]
  - SUICIDAL IDEATION [None]
